FAERS Safety Report 11521638 (Version 1)
Quarter: 2015Q3

REPORT INFORMATION
  Report Type: Spontaneous
  Country: US (occurrence: US)
  Receive Date: 20150918
  Receipt Date: 20150918
  Transmission Date: 20151125
  Serious: No
  Sender: FDA-Public Use
  Company Number: US-ROCHE-728388

PATIENT
  Age: 41 Year
  Sex: Male

DRUGS (2)
  1. COPEGUS [Suspect]
     Active Substance: RIBAVIRIN
     Indication: HEPATITIS C
     Dosage: DIVIDED DOSES
     Route: 065
  2. PEGASYS [Suspect]
     Active Substance: PEGINTERFERON ALFA-2A
     Indication: HEPATITIS C
     Dosage: OTHER INDICATION: CO-INFECTION WITH HIV; FORM: PRE-FILLED SYRINGE
     Route: 065

REACTIONS (6)
  - Paraesthesia [Unknown]
  - Musculoskeletal pain [Unknown]
  - Pyrexia [Unknown]
  - Dizziness [Unknown]
  - Chills [Unknown]
  - Tinnitus [Unknown]

NARRATIVE: CASE EVENT DATE: 20100917
